FAERS Safety Report 8355036-5 (Version None)
Quarter: 2012Q2

REPORT INFORMATION
  Report Type: 
  Country: None (occurrence: None)
  Receive Date: 20120511
  Receipt Date: 20120504
  Transmission Date: 20120825
  Serious: Yes (Death, Hospitalization)
  Sender: FDA-Public Use
  Company Number: FR-BAXTER-2011BH020756

PATIENT
  Sex: Female
  Weight: 55 kg

DRUGS (5)
  1. MABTHERA [Suspect]
     Dosage: DAY 1
     Route: 042
     Dates: start: 20101108, end: 20110328
  2. FLUDARABINE PHOSPHATE [Suspect]
     Dosage: DAY 2, DAY 3, DAY 4
     Route: 042
     Dates: start: 20101109, end: 20110401
  3. CYCLOPHOSPHAMIDE [Suspect]
     Dosage: DAY2, DAY 3, DAY 4
     Route: 042
     Dates: start: 20101109, end: 20110401
  4. VALACYCLOVIR HYDROCHLORIDE [Concomitant]
     Route: 065
  5. BACTRIM [Concomitant]
     Route: 065

REACTIONS (2)
  - BRAIN NEOPLASM MALIGNANT [None]
  - PANCYTOPENIA [None]
